FAERS Safety Report 7504404-X (Version None)
Quarter: 2011Q2

REPORT INFORMATION
  Report Type: 
  Country: None (occurrence: None)
  Receive Date: 20110525
  Receipt Date: 20110513
  Transmission Date: 20111010
  Serious: Yes (Other)
  Sender: FDA-Public Use
  Company Number: US-AMGEN AB-US327994

PATIENT
  Age: 59 Year
  Sex: Male

DRUGS (26)
  1. POTASSIUM CHLORIDE [Concomitant]
  2. ALPRAZOLAM [Concomitant]
     Dosage: 1 MG, TID
  3. FLUTICASONE PROPIONATE [Concomitant]
     Dosage: UNK UNK, UNK
     Route: 045
  4. NEULASTA [Concomitant]
  5. TOLTERODINE TARTRATE [Concomitant]
     Dosage: 4 MG, QD
  6. VINCRISTINE SULFATE [Suspect]
  7. FENOFIBRATE [Concomitant]
     Dosage: 145 MG, QD
  8. ATORVASTATIN CALCIUM [Concomitant]
     Dosage: 10 MG, QD
  9. RITUXIMAB [Concomitant]
  10. DEXAMETHASONE [Concomitant]
  11. VALACYCLOVIR HYDROCHLORIDE [Concomitant]
     Dosage: 1 G, QD
  12. CISPLATIN [Concomitant]
  13. NPLATE [Suspect]
     Dosage: 81 A?G, QWK
     Dates: start: 20080924, end: 20081217
  14. GUAIFENESIN [Concomitant]
  15. PREDNISONE [Concomitant]
  16. TRIAMTERENE AND HYDROCHLOROTHIAZIDE [Concomitant]
  17. AZITHROMYCIN [Concomitant]
  18. METFFORMIN HYDROCHLORIDE [Concomitant]
     Dosage: 500 MG, BID
  19. ETOPOSIDE [Concomitant]
  20. NPLATE [Suspect]
     Indication: IDIOPATHIC THROMBOCYTOPENIC PURPURA
     Dosage: 81 A?G, QWK
     Dates: start: 20080924, end: 20081217
  21. NPLATE [Suspect]
     Dosage: 81 A?G, QWK
     Dates: start: 20080924, end: 20081217
  22. NPLATE [Suspect]
     Dosage: 81 A?G, QWK
     Dates: start: 20080924, end: 20081217
  23. ONDANSETRON [Concomitant]
  24. MULTI-VITAMINS [Concomitant]
  25. PROCHLORPERAZINE MALEATE [Concomitant]
     Dosage: 10 MG, PRN
     Route: 048
  26. ARANESP [Concomitant]

REACTIONS (1)
  - MYELODYSPLASTIC SYNDROME [None]
